FAERS Safety Report 5179617-5 (Version None)
Quarter: 2006Q4

REPORT INFORMATION
  Report Type: 
  Country: None (occurrence: None)
  Receive Date: 20061219
  Receipt Date: 20061205
  Transmission Date: 20070319
  Serious: Yes (Hospitalization, Other)
  Sender: FDA-Public Use
  Company Number: US-ELI_LILLY_AND_COMPANY-US200612000812

PATIENT
  Age: 49 Year
  Sex: Female

DRUGS (1)
  1. FORTEO [Suspect]
     Indication: OSTEOPOROSIS
     Dosage: 20 UG, DAILY (1/D)
     Route: 058
     Dates: start: 20060901

REACTIONS (9)
  - EAR CONGESTION [None]
  - HAEMOPTYSIS [None]
  - IMMUNE SYSTEM DISORDER [None]
  - NAUSEA [None]
  - OXYGEN SATURATION DECREASED [None]
  - PLEURISY [None]
  - PNEUMONIA [None]
  - RESPIRATORY TRACT INFECTION [None]
  - SKELETAL INJURY [None]
